FAERS Safety Report 22942355 (Version 2)
Quarter: 2024Q3

REPORT INFORMATION
  Report Type: Spontaneous
  Country: CN (occurrence: CN)
  Receive Date: 20230914
  Receipt Date: 20240904
  Transmission Date: 20241017
  Serious: Yes (Other)
  Sender: CHEPLAPHARM
  Company Number: CN-ROCHE-3416893

PATIENT
  Age: 69 Year
  Sex: Male
  Weight: 55.9 kg

DRUGS (2)
  1. CAPECITABINE [Suspect]
     Active Substance: CAPECITABINE
     Indication: Rectal cancer
     Dosage: 5 DAYS/WEEK DURING RADIOTHERAPY?DAILY DOSE: 1650 MILLIGRAM/M?
     Route: 048
     Dates: start: 20230426
  2. ATEZOLIZUMAB [Suspect]
     Active Substance: ATEZOLIZUMAB
     Indication: Rectal cancer
     Dosage: ON 11 AUG 2023, PATIENT RECEIVED MOST RECENT DOSE OF ATEZOLIZUMAB, EVERY 3 WEEKS?INTRAVENOUS DRIP
     Route: 042
     Dates: start: 20230627

REACTIONS (1)
  - Hyperthyroidism [Recovered/Resolved]

NARRATIVE: CASE EVENT DATE: 20230904
